FAERS Safety Report 9855619 (Version 5)
Quarter: 2016Q1

REPORT INFORMATION
  Report Type: Spontaneous
  Country: US (occurrence: US)
  Receive Date: 20140130
  Receipt Date: 20160115
  Transmission Date: 20160526
  Serious: Yes (Life-Threatening, Hospitalization)
  Sender: FDA-Public Use
  Company Number: US-BAYER-2014-012550

PATIENT
  Age: 24 Year
  Sex: Female
  Weight: 49.43 kg

DRUGS (2)
  1. MIRENA [Suspect]
     Active Substance: LEVONORGESTREL
     Indication: CONTRACEPTION
     Dosage: 20 MCG/24HR, CONT
     Route: 015
     Dates: start: 20081117, end: 20130709
  2. NAPROXEN. [Concomitant]
     Active Substance: NAPROXEN
     Indication: MIGRAINE

REACTIONS (13)
  - Depression [None]
  - Menorrhagia [None]
  - Injury [None]
  - Medical device discomfort [None]
  - Anxiety [None]
  - Headache [None]
  - Uterine perforation [None]
  - Device difficult to use [None]
  - Medical device pain [None]
  - Infection [None]
  - Emotional distress [None]
  - Device use issue [None]
  - Abdominal pain [None]

NARRATIVE: CASE EVENT DATE: 2008
